FAERS Safety Report 17349282 (Version 2)
Quarter: 2020Q1

REPORT INFORMATION
  Report Type: Spontaneous
  Country: PT (occurrence: PT)
  Receive Date: 20200130
  Receipt Date: 20200205
  Transmission Date: 20200409
  Serious: No
  Sender: FDA-Public Use
  Company Number: PT-009507513-2001PRT008100

PATIENT
  Age: 28 Year
  Sex: Female

DRUGS (1)
  1. DIPROFOS DEPOT [Suspect]
     Active Substance: BETAMETHASONE DIPROPIONATE\BETAMETHASONE SODIUM PHOSPHATE
     Indication: ARTHRALGIA
     Dosage: UNK
     Dates: start: 20200120

REACTIONS (4)
  - Hypersensitivity [Recovering/Resolving]
  - Allergic reaction to excipient [Recovering/Resolving]
  - Papule [Recovering/Resolving]
  - Rash pruritic [Recovering/Resolving]

NARRATIVE: CASE EVENT DATE: 20200120
